FAERS Safety Report 4348060-0 (Version None)
Quarter: 2004Q2

REPORT INFORMATION
  Report Type: 
  Country: None (occurrence: None)
  Receive Date: 20040422
  Receipt Date: 20040405
  Transmission Date: 20050107
  Serious: Yes (Death, Hospitalization)
  Sender: FDA-Public Use
  Company Number: USA040464154

PATIENT
  Age: 81 Year
  Sex: Female

DRUGS (2)
  1. FORTEO [Suspect]
     Indication: OSTEOPOROSIS
     Dates: start: 20031001, end: 20040401
  2. COUMADIN [Concomitant]

REACTIONS (4)
  - ANOREXIA [None]
  - CARDIAC FAILURE [None]
  - DEHYDRATION [None]
  - GASTROINTESTINAL OBSTRUCTION [None]
